FAERS Safety Report 6717434-2 (Version None)
Quarter: 2010Q2

REPORT INFORMATION
  Report Type: 
  Country: None (occurrence: None)
  Receive Date: 20100503
  Receipt Date: 20100420
  Transmission Date: 20101027
  Serious: Yes (Other)
  Sender: FDA-Public Use
  Company Number: 232273K08USA

PATIENT
  Age: 57 Year
  Sex: Male

DRUGS (1)
  1. REBIF [Suspect]
     Indication: MULTIPLE SCLEROSIS
     Dosage: 44 MCG, 3 IN 1 WK, SUBCUTANEOUS
     Route: 058
     Dates: start: 20070416, end: 20090601

REACTIONS (6)
  - CEREBROVASCULAR ACCIDENT [None]
  - FURUNCLE [None]
  - IMMUNE SYSTEM DISORDER [None]
  - INFECTION [None]
  - METASTATIC SQUAMOUS CELL CARCINOMA [None]
  - MULTIPLE SCLEROSIS [None]
